FAERS Safety Report 5410237-0 (Version None)
Quarter: 2007Q3

REPORT INFORMATION
  Report Type: 
  Country: None (occurrence: None)
  Receive Date: 20070809
  Receipt Date: 20070802
  Transmission Date: 20080115
  Serious: Yes (Other)
  Sender: FDA-Public Use
  Company Number: GB-GENENTECH-240087

PATIENT
  Age: 59 Year
  Sex: Female

DRUGS (1)
  1. AVASTIN [Suspect]
     Indication: RETINAL NEOPLASM
     Dosage: 2.5 MG, UNK
     Route: 031
     Dates: start: 20060901

REACTIONS (2)
  - MUSCULAR WEAKNESS [None]
  - SENSORY LOSS [None]
